FAERS Safety Report 19207296 (Version 2)
Quarter: 2021Q2

REPORT INFORMATION
  Report Type: Spontaneous
  Country: US (occurrence: US)
  Receive Date: 20210503
  Receipt Date: 20210512
  Transmission Date: 20210717
  Serious: No
  Sender: FDA-Public Use
  Company Number: US-PFIZER INC-2021257966

PATIENT
  Age: 70 Year
  Sex: Female

DRUGS (2)
  1. IBRANCE [Suspect]
     Active Substance: PALBOCICLIB
     Indication: BREAST CANCER FEMALE
     Dosage: 125 MG CYCLIC (DAILY FOR 21 DAYS ON, 7 DAYS OFF ON A 28 DAY CYCLE)
  2. IBRANCE [Suspect]
     Active Substance: PALBOCICLIB
     Dosage: 125 MG, DAILY FOR 21 DAYS ON, 7 DAYS OFF ON A 28 DAY CYCLE
     Dates: start: 20210303

REACTIONS (7)
  - Arthralgia [Unknown]
  - Gastrointestinal pain [Unknown]
  - Headache [Not Recovered/Not Resolved]
  - Thirst [Unknown]
  - Fatigue [Recovering/Resolving]
  - Nausea [Unknown]
  - Abdominal discomfort [Unknown]
